FAERS Safety Report 7026315-9 (Version None)
Quarter: 2010Q4

REPORT INFORMATION
  Report Type: 
  Country: None (occurrence: None)
  Receive Date: 20101004
  Receipt Date: 20100922
  Transmission Date: 20110411
  Serious: Yes (Hospitalization, Other)
  Sender: FDA-Public Use
  Company Number: JP-PFIZER INC-2010101805

PATIENT
  Age: 80 Year
  Sex: Female
  Weight: 50 kg

DRUGS (9)
  1. ZOLOFT [Suspect]
     Dosage: 50 MG, 1X/DAY
     Route: 048
     Dates: end: 20100809
  2. NAUZELIN [Concomitant]
     Indication: NAUSEA
     Dosage: 10 MG, 3X/DAY
     Route: 048
  3. LENDORMIN [Concomitant]
     Indication: INSOMNIA
     Dosage: 0.25 MG, 1X/DAY
     Route: 048
  4. OMEPRAL [Concomitant]
     Indication: GASTRITIS
     Dosage: 20 MG, 1X/DAY
     Route: 048
  5. PURSENNID [Concomitant]
     Indication: CONSTIPATION
     Dosage: 12 MG, 2X/DAY
     Route: 048
  6. GASMOTIN [Concomitant]
     Indication: GASTRITIS
     Dosage: 1 DF, 3X/DAY
     Route: 048
  7. MAGNESIUM OXIDE [Concomitant]
     Indication: CONSTIPATION
     Dosage: 2 DF, 3X/DAY
     Route: 048
  8. DEPAS [Concomitant]
     Indication: ANXIETY DISORDER
     Dosage: 2 DF, 3X/DAY
     Route: 048
  9. CRESTOR [Concomitant]
     Indication: HYPERLIPIDAEMIA
     Dosage: 1 DF, 1X/DAY
     Route: 048

REACTIONS (2)
  - HYPONATRAEMIA [None]
  - RHABDOMYOLYSIS [None]
